FAERS Safety Report 9316457 (Version 1)
Quarter: 2013Q2

REPORT INFORMATION
  Report Type: Spontaneous
  Country: US (occurrence: US)
  Receive Date: 20130530
  Receipt Date: 20130530
  Transmission Date: 20140414
  Serious: Yes (Other)
  Sender: FDA-Public Use
  Company Number: US-JNJFOC-20130520220

PATIENT
  Sex: 0

DRUGS (2)
  1. EVICEL [Suspect]
     Indication: MENINGEAL REPAIR
     Route: 061
  2. ALL OTHER THERAPEUTIC PRODUCTS [Concomitant]
     Indication: PRODUCT USED FOR UNKNOWN INDICATION
     Route: 065

REACTIONS (3)
  - Meningeal disorder [Unknown]
  - Surgery [Unknown]
  - Off label use [Unknown]
